FAERS Safety Report 7870550-4 (Version None)
Quarter: 2011Q4

REPORT INFORMATION
  Report Type: 
  Country: None (occurrence: None)
  Receive Date: 20111029
  Receipt Date: 20110217
  Transmission Date: 20120403
  Serious: No
  Sender: FDA-Public Use
  Company Number: US-AMGEN-USASP2011009537

PATIENT
  Age: 63 Year
  Sex: Female

DRUGS (1)
  1. ENBREL [Suspect]
     Indication: RHEUMATOID ARTHRITIS
     Dosage: 50 MG, QWK
     Dates: start: 20110203, end: 20110216

REACTIONS (9)
  - CHILLS [None]
  - OROPHARYNGEAL PAIN [None]
  - BRONCHITIS [None]
  - PYREXIA [None]
  - SINUSITIS [None]
  - PAIN [None]
  - NASAL DRYNESS [None]
  - COUGH [None]
  - DIARRHOEA [None]
